FAERS Safety Report 24196360 (Version 3)
Quarter: 2024Q3

REPORT INFORMATION
  Report Type: Report from Study
  Country: US (occurrence: US)
  Receive Date: 20240809
  Receipt Date: 20240926
  Transmission Date: 20241016
  Serious: Yes (Hospitalization, Other)
  Sender: ABBVIE
  Company Number: US-ABBVIE-5871926

PATIENT
  Age: 52 Year
  Sex: Female
  Weight: 85 kg

DRUGS (2)
  1. HUMIRA [Suspect]
     Active Substance: ADALIMUMAB
     Indication: Hidradenitis
     Dosage: CITRATE FREE
     Route: 058
     Dates: start: 20160901
  2. HUMIRA [Suspect]
     Active Substance: ADALIMUMAB
     Route: 058
     Dates: start: 2006

REACTIONS (12)
  - Ovarian cyst [Recovered/Resolved]
  - Cardiac disorder [Recovered/Resolved]
  - Lung disorder [Recovered/Resolved]
  - Asthma [Recovered/Resolved]
  - Urinary tract infection [Recovered/Resolved]
  - Loss of consciousness [Recovered/Resolved]
  - Bundle branch block left [Not Recovered/Not Resolved]
  - Chest pain [Recovered/Resolved]
  - Bartholin^s cyst [Recovered/Resolved]
  - Renal cyst [Not Recovered/Not Resolved]
  - Myocardial necrosis marker increased [Recovered/Resolved]
  - Renal mass [Unknown]

NARRATIVE: CASE EVENT DATE: 20240101
